FAERS Safety Report 21436493 (Version 2)
Quarter: 2023Q1

REPORT INFORMATION
  Report Type: Spontaneous
  Country: US (occurrence: US)
  Receive Date: 20221010
  Receipt Date: 20230308
  Transmission Date: 20230418
  Serious: Yes (Other)
  Sender: FDA-Public Use
  Company Number: US-PFIZER INC-202201213677

PATIENT
  Age: 72 Year
  Sex: Female

DRUGS (1)
  1. XELJANZ [Suspect]
     Active Substance: TOFACITINIB CITRATE
     Dosage: 5 MG (1 TABLET), 2X/DAY
     Route: 048

REACTIONS (6)
  - Thrombosis [Unknown]
  - Superficial vein thrombosis [Unknown]
  - Left ventricular failure [Unknown]
  - Diastolic dysfunction [Unknown]
  - Dyspnoea [Unknown]
  - Muscle spasms [Unknown]

NARRATIVE: CASE EVENT DATE: 20200217
